FAERS Safety Report 7068206-3 (Version None)
Quarter: 2010Q4

REPORT INFORMATION
  Report Type: 
  Country: None (occurrence: None)
  Receive Date: 20101028
  Receipt Date: 20100430
  Transmission Date: 20110411
  Serious: No
  Sender: FDA-Public Use
  Company Number: US-MYLANLABS-2010S1007904

PATIENT
  Age: 75 Year
  Sex: Female
  Weight: 72.12 kg

DRUGS (3)
  1. DIAZEPAM [Suspect]
     Indication: ANXIETY
     Route: 048
     Dates: start: 20100429, end: 20100429
  2. FLUOXETINE [Suspect]
     Indication: ANXIETY
     Route: 048
     Dates: start: 20100429, end: 20100429
  3. SOMA [Concomitant]
     Route: 048

REACTIONS (3)
  - DYSPEPSIA [None]
  - GLOSSODYNIA [None]
  - ORAL DISCOMFORT [None]
